FAERS Safety Report 10545240 (Version 5)
Quarter: 2015Q1

REPORT INFORMATION
  Report Type: Report from Study
  Country: US (occurrence: US)
  Receive Date: 20141027
  Receipt Date: 20150127
  Transmission Date: 20150720
  Serious: Yes (Other)
  Sender: FDA-Public Use
  Company Number: US-BAYER-2014-148599

PATIENT
  Age: 76 Year
  Sex: Female

DRUGS (3)
  1. STIVARGA [Suspect]
     Active Substance: REGORAFENIB
     Indication: RECTAL CANCER
     Dosage: 40 MG, 4 TABLETS, DAILY
     Route: 048
     Dates: start: 20140929
  2. STIVARGA [Suspect]
     Active Substance: REGORAFENIB
     Indication: RECTAL CANCER
     Dosage: 40 MG, 2 TABLETS, DAILY
     Route: 048
     Dates: start: 20141125, end: 20150121
  3. STIVARGA [Suspect]
     Active Substance: REGORAFENIB
     Indication: COLON CANCER
     Dosage: 40 MG, 2 TABLETS, DAILY
     Route: 048
     Dates: end: 20141009

REACTIONS (20)
  - Pain [Not Recovered/Not Resolved]
  - Pruritus [Not Recovered/Not Resolved]
  - Blood pressure increased [Recovering/Resolving]
  - Haemoptysis [Not Recovered/Not Resolved]
  - Anorectal discomfort [None]
  - Weight decreased [Not Recovered/Not Resolved]
  - Hepatic pain [Not Recovered/Not Resolved]
  - Glossodynia [Not Recovered/Not Resolved]
  - Pain of skin [Recovering/Resolving]
  - Blister [Recovering/Resolving]
  - Glossitis [Not Recovered/Not Resolved]
  - Back pain [None]
  - Erythema [Recovering/Resolving]
  - Abdominal distension [Not Recovered/Not Resolved]
  - Asthenia [Not Recovered/Not Resolved]
  - Skin burning sensation [Recovering/Resolving]
  - Pain in extremity [Not Recovered/Not Resolved]
  - Decreased appetite [Not Recovered/Not Resolved]
  - Gait disturbance [Recovering/Resolving]
  - Insomnia [Not Recovered/Not Resolved]

NARRATIVE: CASE EVENT DATE: 20140929
